FAERS Safety Report 9444360 (Version 1)
Quarter: 2013Q3

REPORT INFORMATION
  Report Type: Report from Study
  Country: CA (occurrence: CA)
  Receive Date: 20130807
  Receipt Date: 20130807
  Transmission Date: 20140515
  Serious: Yes (Hospitalization)
  Sender: FDA-Public Use
  Company Number: CA-JNJFOC-20130719123

PATIENT
  Age: 62 Year
  Sex: Female
  Weight: 62.9 kg

DRUGS (6)
  1. REMICADE [Suspect]
     Indication: CROHN^S DISEASE
     Route: 042
     Dates: start: 20040304
  2. EFFEXOR [Concomitant]
     Route: 065
  3. SYNTHROID [Concomitant]
     Route: 065
  4. HYDROCHLOROTHIAZIDE [Concomitant]
     Route: 065
  5. HYDROMORPHONE [Concomitant]
     Route: 065
  6. REMERON [Concomitant]
     Route: 065

REACTIONS (1)
  - Medical device implantation [Recovered/Resolved]
